FAERS Safety Report 21783328 (Version 1)
Quarter: 2022Q4

REPORT INFORMATION
  Report Type: Spontaneous
  Country: KR (occurrence: KR)
  Receive Date: 20221227
  Receipt Date: 20221227
  Transmission Date: 20230113
  Serious: No
  Sender: FDA-Public Use
  Company Number: KR-PFIZER INC-PV202200128340

PATIENT
  Age: 70 Year
  Sex: Female

DRUGS (2)
  1. PAXLOVID [Suspect]
     Active Substance: NIRMATRELVIR\RITONAVIR
     Indication: COVID-19 treatment
     Dosage: UNK
     Route: 048
  2. PAXLOVID [Suspect]
     Active Substance: NIRMATRELVIR\RITONAVIR
     Dosage: FROM THE SECOND DAY, SHE REDUCED THE AMOUNT OF NIRMATRELVIR TO 1 TABLET
     Route: 048

REACTIONS (9)
  - Abdominal pain upper [Unknown]
  - Frequent bowel movements [Unknown]
  - Dysgeusia [Unknown]
  - Headache [Unknown]
  - Dizziness [Unknown]
  - Arthralgia [Unknown]
  - Cough [Unknown]
  - Productive cough [Unknown]
  - Incorrect dose administered [Unknown]
